FAERS Safety Report 9161146 (Version 4)
Quarter: 2013Q4

REPORT INFORMATION
  Report Type: Spontaneous
  Country: FR (occurrence: FR)
  Receive Date: 20130313
  Receipt Date: 20131230
  Transmission Date: 20140711
  Serious: Yes (Death, Hospitalization, Other)
  Sender: FDA-Public Use
  Company Number: FR-009507513-1303FRA001476

PATIENT
  Age: 52 Year
  Sex: Male
  Weight: 88 kg

DRUGS (17)
  1. VICTRELIS [Suspect]
     Indication: HEPATITIS C
     Dosage: 2400 MG, QD
     Route: 048
     Dates: start: 20120319, end: 20130211
  2. VIRAFERONPEG [Suspect]
     Indication: HEPATITIS C
     Dosage: 120 MICROGRAM, QW
     Route: 058
     Dates: start: 20120319, end: 20121209
  3. VIRAFERONPEG [Suspect]
     Dosage: 100 MICROGRAM, QW
     Dates: start: 20121210, end: 20130211
  4. REBETOL [Suspect]
     Indication: HEPATITIS C
     Dosage: 200 MG, TID
     Route: 048
     Dates: start: 20121108, end: 20121111
  5. REBETOL [Suspect]
     Dosage: 1000 MG, QD
     Route: 048
     Dates: start: 20120319, end: 20121024
  6. REBETOL [Suspect]
     Dosage: 400 MG, BID
     Route: 048
     Dates: start: 20121025, end: 20121107
  7. NEORECORMON [Concomitant]
     Indication: ANAEMIA
     Dosage: 30000 IU, QW
     Dates: start: 20120515
  8. LYRICA [Concomitant]
     Indication: NEURALGIA
     Dosage: 75 MG, BID
     Dates: start: 20120914
  9. ATARAX (HYDROXYZINE HYDROCHLORIDE) [Concomitant]
     Indication: ANXIETY
     Dosage: 25 MG, QD
     Dates: start: 20120914
  10. DEXERYL CREAM [Concomitant]
     Indication: DRY SKIN
     Dosage: UNK
     Dates: start: 20120914
  11. LASILIX [Concomitant]
     Indication: ASCITES
     Dosage: 40 MG, QD
     Dates: start: 20130719, end: 20130720
  12. SOLUDACTONE [Concomitant]
     Indication: ASCITES
     Dosage: 200 MG, QD
     Dates: start: 20130717, end: 20130720
  13. ERYTHROMYCIN [Concomitant]
     Indication: PERITONITIS
     Dosage: 250 MG, Q4D
     Dates: start: 20130719, end: 20130720
  14. CERNEVIT [Concomitant]
     Indication: VITAMIN SUPPLEMENTATION
     Dosage: 1 DF, QD
     Dates: start: 20130709, end: 20130720
  15. DECAN [Concomitant]
     Indication: VITAMIN SUPPLEMENTATION
     Dosage: 1 DF, QD
     Dates: start: 20130709, end: 20130720
  16. INEXIUM [Concomitant]
     Indication: VITAMIN SUPPLEMENTATION
     Dosage: 40 MG, QD
     Dates: start: 20130709, end: 20130720
  17. DOLIPRANE [Concomitant]
     Route: 065

REACTIONS (10)
  - Haemorrhagic stroke [Recovered/Resolved with Sequelae]
  - Hepatocellular injury [Fatal]
  - Cerebral haematoma [Recovered/Resolved with Sequelae]
  - Hemiparesis [Recovered/Resolved with Sequelae]
  - Pancytopenia [Unknown]
  - Sleep disorder [Unknown]
  - Gingival disorder [Unknown]
  - Abdominal pain lower [Unknown]
  - Xerosis [Recovered/Resolved]
  - Anaemia [Recovered/Resolved]
